FAERS Safety Report 6299718-8 (Version None)
Quarter: 2009Q3

REPORT INFORMATION
  Report Type: 
  Country: None (occurrence: None)
  Receive Date: 20090803
  Receipt Date: 20090724
  Transmission Date: 20100115
  Serious: Yes (Other)
  Sender: FDA-Public Use
  Company Number: TRP_06331_2009

PATIENT
  Age: 51 Year
  Sex: Female

DRUGS (5)
  1. RIBASPHERE [Suspect]
     Indication: HEPATITIS C
     Dosage: (1400 MG, DAILY), (1200 MG, DAILY)
     Dates: start: 20090131, end: 20090501
  2. RIBASPHERE [Suspect]
     Indication: HEPATITIS C
     Dosage: (1400 MG, DAILY), (1200 MG, DAILY)
     Dates: start: 20090516, end: 20090701
  3. PEGASYS [Suspect]
     Indication: HEPATITIS C
     Dosage: (180 ?G 1X/WEEK), (135 ?G)
     Dates: start: 20090131, end: 20090501
  4. PEGASYS [Suspect]
     Indication: HEPATITIS C
     Dosage: (180 ?G 1X/WEEK), (135 ?G)
     Dates: start: 20090516, end: 20090701
  5. PROZAC /00724401/ [Concomitant]

REACTIONS (14)
  - ABASIA [None]
  - ALOPECIA [None]
  - ANXIETY [None]
  - ARTHRALGIA [None]
  - DEPRESSION [None]
  - DYSPNOEA [None]
  - FATIGUE [None]
  - HYPERHIDROSIS [None]
  - JOINT SWELLING [None]
  - MUSCULAR WEAKNESS [None]
  - PALPITATIONS [None]
  - SUICIDAL IDEATION [None]
  - THYROID DISORDER [None]
  - TREMOR [None]
